FAERS Safety Report 10524437 (Version 1)
Quarter: 2014Q4

REPORT INFORMATION
  Report Type: Spontaneous
  Country: US (occurrence: None)
  Receive Date: 20141015
  Receipt Date: 20141015
  Transmission Date: 20150528
  Serious: No
  Sender: FDA-Public Use
  Company Number: None

PATIENT
  Age: 36 Year
  Sex: Female
  Weight: 56.7 kg

DRUGS (2)
  1. PHENTERMINE [Suspect]
     Active Substance: PHENTERMINE
     Indication: DECREASED APPETITE
     Dosage: 1/2 PILL @ 15 MG, ONCE DAILY, TAKEN BY MOUTH
     Route: 048
     Dates: start: 20140825, end: 20140915
  2. TRAMADOL [Concomitant]
     Active Substance: TRAMADOL

REACTIONS (11)
  - Anxiety [None]
  - Hypopnoea [None]
  - Affect lability [None]
  - Palpitations [None]
  - Substance-induced psychotic disorder [None]
  - Respiratory rate increased [None]
  - Insomnia [None]
  - Restlessness [None]
  - Paranoia [None]
  - Suicidal ideation [None]
  - Abnormal behaviour [None]

NARRATIVE: CASE EVENT DATE: 20140915
